FAERS Safety Report 14344011 (Version 1)
Quarter: 2018Q1

REPORT INFORMATION
  Report Type: Spontaneous
  Country: US (occurrence: US)
  Receive Date: 20180102
  Receipt Date: 20180102
  Transmission Date: 20180509
  Serious: No
  Sender: FDA-Public Use
  Company Number: US-GALDERMA-US17009047

PATIENT

DRUGS (3)
  1. SOOLANTRA [Suspect]
     Active Substance: IVERMECTIN
     Indication: ACNE
     Dosage: 1%
     Route: 061
     Dates: start: 2015
  2. SOOLANTRA [Suspect]
     Active Substance: IVERMECTIN
     Indication: ROSACEA
  3. MIRVASO [Suspect]
     Active Substance: BRIMONIDINE TARTRATE
     Indication: ROSACEA
     Dosage: 0.33%
     Route: 061
     Dates: start: 2015

REACTIONS (3)
  - Flushing [Unknown]
  - Rebound effect [Unknown]
  - Intentional product misuse [Unknown]
